FAERS Safety Report 11563594 (Version 1)
Quarter: 2015Q3

REPORT INFORMATION
  Report Type: Spontaneous
  Country: US (occurrence: US)
  Receive Date: 20150928
  Receipt Date: 20150928
  Transmission Date: 20151125
  Serious: No
  Sender: FDA-Public Use
  Company Number: US-UPSHER-SMITH LABORATORIES, INC.-13003804

PATIENT
  Age: 56 Year
  Sex: Female

DRUGS (5)
  1. COPAXONE [Concomitant]
     Active Substance: GLATIRAMER ACETATE
     Indication: MULTIPLE SCLEROSIS
     Dosage: UNK
  2. ATENOLOL. [Concomitant]
     Active Substance: ATENOLOL
     Indication: HYPERTENSION
     Dosage: UNK
  3. AMANTADINE HYDROCHLORIDE. [Suspect]
     Active Substance: AMANTADINE HYDROCHLORIDE
     Indication: MULTIPLE SCLEROSIS
     Dosage: 100 MG, QD
     Route: 048
     Dates: start: 20131018, end: 20131102
  4. FIBER [Concomitant]
     Active Substance: PSYLLIUM HUSK
     Dosage: UNK
  5. MAGNESIUM [Concomitant]
     Active Substance: MAGNESIUM
     Dosage: UNK

REACTIONS (17)
  - Otitis externa [Recovered/Resolved]
  - Constipation [Recovered/Resolved]
  - Somnolence [Recovered/Resolved]
  - Aversion [Recovered/Resolved]
  - Influenza like illness [Recovered/Resolved]
  - Sinusitis [Recovered/Resolved]
  - Tooth infection [Recovered/Resolved]
  - Chills [Recovered/Resolved]
  - Food aversion [Recovered/Resolved]
  - Tardive dyskinesia [Recovered/Resolved]
  - Urine output decreased [Recovered/Resolved]
  - Diarrhoea [Recovered/Resolved]
  - Confusional state [Recovered/Resolved]
  - Anion gap abnormal [Unknown]
  - Thirst [Recovered/Resolved]
  - Chromaturia [Recovered/Resolved]
  - Blood creatinine increased [Unknown]

NARRATIVE: CASE EVENT DATE: 20131031
